FAERS Safety Report 7606776-4 (Version None)
Quarter: 2011Q3

REPORT INFORMATION
  Report Type: 
  Country: None (occurrence: None)
  Receive Date: 20110713
  Receipt Date: 20110708
  Transmission Date: 20111222
  Serious: Yes (Other)
  Sender: FDA-Public Use
  Company Number: RU-ROCHE-788337

PATIENT
  Age: 63 Year
  Sex: Female

DRUGS (1)
  1. BONIVA [Suspect]
     Indication: OSTEOPOROSIS
     Dosage: FREQUENCY: ONCE
     Route: 042
     Dates: start: 20110602, end: 20110602

REACTIONS (1)
  - PIRIFORMIS SYNDROME [None]
